FAERS Safety Report 20322146 (Version 2)
Quarter: 2022Q4

REPORT INFORMATION
  Report Type: Spontaneous
  Country: IT (occurrence: IT)
  Receive Date: 20220111
  Receipt Date: 20221128
  Transmission Date: 20230113
  Serious: Yes (Hospitalization, Other)
  Sender: FDA-Public Use
  Company Number: IT-UCBSA-2021059530

PATIENT
  Age: 8 Year
  Sex: Male

DRUGS (25)
  1. TOPIRAMATE [Suspect]
     Active Substance: TOPIRAMATE
     Indication: Seizure
     Dosage: UNK
     Route: 065
  2. TOPIRAMATE [Suspect]
     Active Substance: TOPIRAMATE
     Indication: Febrile infection-related epilepsy syndrome
  3. DIAZEPAM [Suspect]
     Active Substance: DIAZEPAM
     Indication: Febrile infection-related epilepsy syndrome
     Dosage: UNK (ENDORECTAL)
     Route: 065
  4. DIAZEPAM [Suspect]
     Active Substance: DIAZEPAM
     Indication: Seizure
  5. LEVETIRACETAM [Suspect]
     Active Substance: LEVETIRACETAM
     Indication: Febrile infection-related epilepsy syndrome
     Dosage: UNK
     Route: 065
  6. VIMPAT [Suspect]
     Active Substance: LACOSAMIDE
     Indication: Seizure
     Dosage: UNK
     Route: 065
  7. CARBAMAZEPINE [Suspect]
     Active Substance: CARBAMAZEPINE
     Indication: Seizure
     Dosage: UNK
     Route: 065
  8. CARBAMAZEPINE [Suspect]
     Active Substance: CARBAMAZEPINE
     Indication: Febrile infection-related epilepsy syndrome
  9. VALPROIC ACID [Suspect]
     Active Substance: VALPROIC ACID
     Indication: Seizure
     Dosage: UNK
     Route: 065
  10. VALPROIC ACID [Suspect]
     Active Substance: VALPROIC ACID
     Indication: Febrile infection-related epilepsy syndrome
  11. KEPPRA [Suspect]
     Active Substance: LEVETIRACETAM
     Indication: Seizure
     Dosage: UNK
     Route: 065
  12. THIOPENTAL [Suspect]
     Active Substance: THIOPENTAL
     Indication: Seizure
     Dosage: 5 MILLIGRAM/KILOGRAM (5 MG/KG/H )
     Route: 065
  13. THIOPENTAL [Suspect]
     Active Substance: THIOPENTAL
     Indication: Febrile infection-related epilepsy syndrome
  14. PHENYTOIN [Suspect]
     Active Substance: PHENYTOIN
     Indication: Seizure
     Dosage: UNK
     Route: 065
  15. PHENYTOIN [Suspect]
     Active Substance: PHENYTOIN
     Indication: Febrile infection-related epilepsy syndrome
  16. PROPOFOL [Suspect]
     Active Substance: PROPOFOL
     Indication: Seizure
     Dosage: TO 4 MG/KG/H
     Route: 065
  17. PROPOFOL [Suspect]
     Active Substance: PROPOFOL
     Indication: Febrile infection-related epilepsy syndrome
  18. MIDAZOLAM [Suspect]
     Active Substance: MIDAZOLAM
     Indication: Seizure
     Dosage: UNK (MIDAZOLAM AT A DOSAGE UP TO 20 MCG/KG/MIN)
     Route: 065
  19. MIDAZOLAM [Suspect]
     Active Substance: MIDAZOLAM
     Indication: Febrile infection-related epilepsy syndrome
  20. LACOSAMIDE [Suspect]
     Active Substance: LACOSAMIDE
     Indication: Febrile infection-related epilepsy syndrome
     Dosage: UNK
     Route: 042
  21. SEVOFLURANE [Suspect]
     Active Substance: SEVOFLURANE
     Indication: Febrile infection-related epilepsy syndrome
     Dosage: UNK
  22. PHENOBARBITAL [Suspect]
     Active Substance: PHENOBARBITAL
     Indication: Seizure
     Dosage: UNK
     Route: 065
  23. PHENOBARBITAL [Suspect]
     Active Substance: PHENOBARBITAL
     Indication: Febrile infection-related epilepsy syndrome
  24. KETAMINE [Concomitant]
     Active Substance: KETAMINE
     Indication: Seizure
     Dosage: UNK
     Route: 065
  25. KETAMINE [Concomitant]
     Active Substance: KETAMINE
     Indication: Febrile infection-related epilepsy syndrome
     Dosage: 100 MCG/KG/MIN
     Route: 065

REACTIONS (5)
  - Status epilepticus [Unknown]
  - Metabolic acidosis [Unknown]
  - Drug ineffective [Unknown]
  - Off label use [Unknown]
  - Multiple-drug resistance [Unknown]
